FAERS Safety Report 4325153-5 (Version None)
Quarter: 2004Q1

REPORT INFORMATION
  Report Type: 
  Country: None (occurrence: None)
  Receive Date: 20040324
  Receipt Date: 20040309
  Transmission Date: 20041129
  Serious: Yes (Hospitalization)
  Sender: FDA-Public Use
  Company Number: GBWYE639612MAR04

PATIENT
  Age: 67 Year
  Sex: Male

DRUGS (7)
  1. DIAMOX [Suspect]
     Indication: GLAUCOMA
     Dosage: 250 MG 4X PER 1 DAY, ORAL
     Route: 048
     Dates: start: 19970101, end: 20040226
  2. PREDNISOLONE [Concomitant]
  3. TEMAZEPAM [Concomitant]
  4. ASPIRIN [Concomitant]
  5. RISPERIDONE [Concomitant]
  6. LORAZEPAM [Concomitant]
  7. VENLAFAXINE HCL [Concomitant]

REACTIONS (3)
  - LOWER RESPIRATORY TRACT INFECTION [None]
  - METABOLIC ACIDOSIS [None]
  - WHEEZING [None]
